FAERS Safety Report 6414158-6 (Version None)
Quarter: 2009Q4

REPORT INFORMATION
  Report Type: 
  Country: None (occurrence: None)
  Receive Date: 20091026
  Receipt Date: 20091021
  Transmission Date: 20100525
  Serious: Yes (Hospitalization, Disabling, Other)
  Sender: FDA-Public Use
  Company Number: AU-PFIZER INC-2009273840

PATIENT
  Age: 79 Year

DRUGS (3)
  1. XALATAN [Suspect]
     Indication: GLAUCOMA
     Dosage: 1 DROP IN EACH EYE, 1X/DAY
     Route: 047
     Dates: start: 20080822
  2. CARDIZEM [Suspect]
     Dosage: UNK
     Dates: end: 20090801
  3. ALPHAGAN [Suspect]
     Indication: GLAUCOMA
     Dosage: 1 DROP IN EACH EYE, 2X/DAY
     Route: 047
     Dates: start: 20080926

REACTIONS (6)
  - ABDOMINAL PAIN [None]
  - ASCITES [None]
  - GASTROINTESTINAL DISORDER [None]
  - HEREDITARY ANGIOEDEMA [None]
  - SPLENOMEGALY [None]
  - VOMITING [None]
